FAERS Safety Report 21216821 (Version 1)
Quarter: 2022Q3

REPORT INFORMATION
  Report Type: Spontaneous
  Country: US (occurrence: US)
  Receive Date: 20220816
  Receipt Date: 20220816
  Transmission Date: 20221027
  Serious: No
  Sender: FDA-Public Use
  Company Number: US-BoehringerIngelheim-2022-BI-187151

PATIENT
  Sex: Male

DRUGS (2)
  1. JARDIANCE [Suspect]
     Active Substance: EMPAGLIFLOZIN
     Indication: Type 1 diabetes mellitus
  2. TRADJENTA [Suspect]
     Active Substance: LINAGLIPTIN
     Indication: Type 1 diabetes mellitus

REACTIONS (3)
  - Off label use [Unknown]
  - Off label use [Unknown]
  - Off label use [Unknown]
